FAERS Safety Report 13301513 (Version 1)
Quarter: 2017Q1

REPORT INFORMATION
  Report Type: Spontaneous
  Country: EC (occurrence: EC)
  Receive Date: 20170307
  Receipt Date: 20170307
  Transmission Date: 20170428
  Serious: Yes (Other)
  Sender: FDA-Public Use
  Company Number: EC-MYLANLABS-2017M1013061

PATIENT

DRUGS (1)
  1. ROCURONIUM [Suspect]
     Active Substance: ROCURONIUM BROMIDE
     Indication: PRODUCT USED FOR UNKNOWN INDICATION
     Dosage: 50MG
     Route: 042

REACTIONS (5)
  - Apnoea [Recovered/Resolved]
  - Syncope [Recovered/Resolved]
  - Rash generalised [Unknown]
  - Unresponsive to stimuli [Recovered/Resolved]
  - Wrong drug administered [Recovered/Resolved]
